FAERS Safety Report 11456742 (Version 1)
Quarter: 2015Q3

REPORT INFORMATION
  Report Type: Report from Study
  Country: CZ (occurrence: CZ)
  Receive Date: 20150903
  Receipt Date: 20150903
  Transmission Date: 20151125
  Serious: Yes (Other)
  Sender: FDA-Public Use
  Company Number: CZ-TEVA-589568ISR

PATIENT
  Age: 23 Year
  Sex: Male

DRUGS (2)
  1. OLANZAPINE. [Suspect]
     Active Substance: OLANZAPINE
     Dosage: 20 MILLIGRAM DAILY;
     Route: 048
  2. AMISULPRIDE [Suspect]
     Active Substance: AMISULPRIDE
     Dosage: 400 MILLIGRAM DAILY;
     Route: 048

REACTIONS (3)
  - Lipid metabolism disorder [Unknown]
  - Tobacco abuse [Unknown]
  - Drug abuse [Unknown]
